FAERS Safety Report 4459353-0 (Version None)
Quarter: 2004Q3

REPORT INFORMATION
  Report Type: 
  Country: None (occurrence: None)
  Receive Date: 20040923
  Receipt Date: 20040916
  Transmission Date: 20050211
  Serious: No
  Sender: FDA-Public Use
  Company Number: 2004-09-0277

PATIENT
  Age: 62 Year
  Sex: Male

DRUGS (1)
  1. NASONEX [Suspect]
     Indication: CHRONIC SINUSITIS
     Dosage: ONCE QD NASAL SPRAY
     Dates: start: 19990101

REACTIONS (1)
  - GLAUCOMA [None]
